FAERS Safety Report 9145269 (Version 1)
Quarter: 2013Q1

REPORT INFORMATION
  Report Type: Spontaneous
  Country: US (occurrence: None)
  Receive Date: 20130226
  Receipt Date: 20130226
  Transmission Date: 20140127
  Serious: No
  Sender: FDA-Public Use
  Company Number: None

PATIENT
  Age: 66 Year
  Sex: Male
  Weight: 88.45 kg

DRUGS (1)
  1. MELOXICAM [Suspect]
     Indication: INFLAMMATION
     Dosage: 15 MG  1/ DAY
     Dates: start: 20130111, end: 20130218

REACTIONS (3)
  - Drug ineffective [None]
  - Product shape issue [None]
  - Product substitution issue [None]
